FAERS Safety Report 7255488-8 (Version None)
Quarter: 2011Q1

REPORT INFORMATION
  Report Type: 
  Country: None (occurrence: None)
  Receive Date: 20110129
  Receipt Date: 20100414
  Transmission Date: 20110831
  Serious: No
  Sender: FDA-Public Use
  Company Number: US-ABBOTT-10P-163-0635530-00

PATIENT
  Sex: Male
  Weight: 79.45 kg

DRUGS (5)
  1. OMEPRAZOLE [Concomitant]
     Indication: GASTRIC DISORDER
  2. HUMIRA [Suspect]
     Indication: PSORIATIC ARTHROPATHY
  3. OMEPRAZOLE [Concomitant]
     Indication: PROPHYLAXIS
  4. HUMIRA [Suspect]
     Indication: PSORIASIS
     Route: 058
     Dates: start: 20100201
  5. VOLTAREN [Concomitant]
     Indication: PSORIATIC ARTHROPATHY

REACTIONS (1)
  - INJECTION SITE PAIN [None]
